FAERS Safety Report 19471549 (Version 1)
Quarter: 2021Q2

REPORT INFORMATION
  Report Type: Spontaneous
  Country: US (occurrence: US)
  Receive Date: 20210629
  Receipt Date: 20210629
  Transmission Date: 20210717
  Serious: Yes (Hospitalization)
  Sender: FDA-Public Use
  Company Number: None

PATIENT
  Age: 3 Year
  Sex: Male
  Weight: 13.2 kg

DRUGS (4)
  1. G?CSF (FILGRASTIM, AMGEN) 59.55 MCG [Suspect]
     Active Substance: FILGRASTIM
     Dates: end: 20210615
  2. MELPHALAN 7210?JUN MG [Suspect]
     Active Substance: MELPHALAN
     Dates: end: 20210610
  3. ETOPOSIDE [VP?16] 319.2MG [Suspect]
     Active Substance: ETOPOSIDE
     Dates: end: 20210611
  4. CARBOPLATIN 520 MG [Suspect]
     Active Substance: CARBOPLATIN
     Dates: end: 20210611

REACTIONS (8)
  - Tachypnoea [None]
  - Klebsiella bacteraemia [None]
  - Vascular device infection [None]
  - Device related infection [None]
  - Mucosal inflammation [None]
  - Tachycardia [None]
  - Neutropenia [None]
  - Hypotension [None]

NARRATIVE: CASE EVENT DATE: 20210621
